FAERS Safety Report 9497783 (Version 1)
Quarter: 2013Q3

REPORT INFORMATION
  Report Type: Spontaneous
  Country: US (occurrence: None)
  Receive Date: 20130903
  Receipt Date: 20130903
  Transmission Date: 20140515
  Serious: Yes (Disabling)
  Sender: FDA-Public Use
  Company Number: None

PATIENT
  Age: 36 Year
  Sex: Female
  Weight: 72.58 kg

DRUGS (2)
  1. CYMBALTA [Suspect]
     Indication: HEADACHE
     Route: 048
     Dates: start: 20130118
  2. CYMBALTA [Suspect]
     Indication: MUSCLE SPASMS
     Route: 048
     Dates: start: 20130118

REACTIONS (12)
  - Paraesthesia [None]
  - Dizziness [None]
  - Impaired work ability [None]
  - Hyperhidrosis [None]
  - Tremor [None]
  - Syncope [None]
  - Activities of daily living impaired [None]
  - Drug ineffective [None]
  - Drug withdrawal syndrome [None]
  - Headache [None]
  - Nausea [None]
  - Myalgia [None]
